FAERS Safety Report 16206148 (Version 2)
Quarter: 2019Q2

REPORT INFORMATION
  Report Type: Report from Study
  Country: US (occurrence: US)
  Receive Date: 20190417
  Receipt Date: 20190506
  Transmission Date: 20190711
  Serious: Yes (Other)
  Sender: FDA-Public Use
  Company Number: US-ROCHE-2304079

PATIENT
  Age: 59 Year
  Sex: Male

DRUGS (8)
  1. ZYRTEC [Concomitant]
     Active Substance: CETIRIZINE HYDROCHLORIDE
     Route: 048
     Dates: start: 201803
  2. BACTRIM [Concomitant]
     Active Substance: SULFAMETHOXAZOLE\TRIMETHOPRIM
     Route: 065
     Dates: start: 20190316
  3. ATEZOLIZUMAB. [Suspect]
     Active Substance: ATEZOLIZUMAB
     Indication: RENAL CELL CARCINOMA
     Dosage: MOST RECENT DOSE ON 26/MAR/2019 AT 10:43
     Route: 042
     Dates: start: 20180918
  4. TRULICITY [Concomitant]
     Active Substance: DULAGLUTIDE
     Route: 058
     Dates: start: 201802
  5. MUCINEX DM [Concomitant]
     Active Substance: DEXTROMETHORPHAN HYDROBROMIDE\GUAIFENESIN
     Route: 048
     Dates: start: 20190306
  6. SUDAFED [Concomitant]
     Active Substance: PSEUDOEPHEDRINE HYDROCHLORIDE
     Route: 048
     Dates: start: 20181211
  7. IBUPROFEN. [Concomitant]
     Active Substance: IBUPROFEN
     Route: 048
     Dates: start: 2008
  8. PREDNISONE. [Concomitant]
     Active Substance: PREDNISONE
     Route: 048
     Dates: start: 20190412

REACTIONS (1)
  - Neuropathy peripheral [Not Recovered/Not Resolved]

NARRATIVE: CASE EVENT DATE: 20190412
